FAERS Safety Report 26006890 (Version 1)
Quarter: 2025Q4

REPORT INFORMATION
  Report Type: Spontaneous
  Country: CN (occurrence: CN)
  Receive Date: 20251106
  Receipt Date: 20251106
  Transmission Date: 20260117
  Serious: Yes (Other)
  Sender: Haleon PLC
  Company Number: CN-HALEON-2272385

PATIENT
  Age: 42 Year
  Sex: Female
  Weight: 53 kg

DRUGS (2)
  1. DICLOFENAC SODIUM [Suspect]
     Active Substance: DICLOFENAC SODIUM
     Indication: Back pain
     Route: 048
     Dates: start: 20251029, end: 20251030
  2. EPERISONE HYDROCHLORIDE [Suspect]
     Active Substance: EPERISONE HYDROCHLORIDE
     Indication: Back pain
     Route: 048
     Dates: start: 20251029, end: 20251030

REACTIONS (6)
  - Skin lesion [Recovering/Resolving]
  - Drug eruption [Recovering/Resolving]
  - Rash [Recovering/Resolving]
  - Pruritus [Recovering/Resolving]
  - Papule [Recovering/Resolving]
  - Erythema [Recovering/Resolving]

NARRATIVE: CASE EVENT DATE: 20251030
